FAERS Safety Report 17241944 (Version 1)
Quarter: 2020Q1

REPORT INFORMATION
  Report Type: Spontaneous
  Country: US (occurrence: US)
  Receive Date: 20200107
  Receipt Date: 20200107
  Transmission Date: 20200409
  Serious: Yes (Other)
  Sender: FDA-Public Use
  Company Number: NVSC2020US001020

PATIENT
  Age: 71 Year
  Sex: Female

DRUGS (5)
  1. METHOTREXATE. [Suspect]
     Active Substance: METHOTREXATE
     Indication: BREAST CANCER METASTATIC
     Dosage: 3.5 G/M2
     Route: 065
  2. ANASTROZOLE. [Suspect]
     Active Substance: ANASTROZOLE
     Indication: BREAST CANCER METASTATIC
     Dosage: 1 MG, QD
     Route: 065
  3. CAPECITABINE. [Suspect]
     Active Substance: CAPECITABINE
     Indication: BREAST CANCER METASTATIC
     Dosage: UNK
     Route: 065
  4. METHOTREXATE. [Suspect]
     Active Substance: METHOTREXATE
     Dosage: 4 G/M2
     Route: 065
  5. METHOTREXATE. [Suspect]
     Active Substance: METHOTREXATE
     Dosage: 8 G/M2
     Route: 065

REACTIONS (2)
  - Malignant neoplasm progression [Unknown]
  - Breast cancer metastatic [Unknown]
